FAERS Safety Report 10087884 (Version 2)
Quarter: 2014Q2

REPORT INFORMATION
  Report Type: Spontaneous
  Country: US (occurrence: US)
  Receive Date: 20140418
  Receipt Date: 20140418
  Transmission Date: 20141212
  Serious: No
  Sender: FDA-Public Use
  Company Number: US-PURDUE-USA-2014-0111176

PATIENT
  Sex: Female

DRUGS (8)
  1. OXYCONTIN (NDA 22-272) [Suspect]
     Indication: BACK PAIN
     Dosage: 1 TABLET, UNK
     Route: 048
     Dates: start: 2007, end: 2007
  2. OXYCODONE HYDROCHLORIDE (SIMILAR TO NDA 22-272) [Suspect]
     Indication: PRODUCT USED FOR UNKNOWN INDICATION
     Route: 048
  3. LYRICA [Suspect]
     Indication: DEPRESSION
     Dosage: UNK
     Dates: start: 20131210, end: 20131227
  4. LYRICA [Suspect]
     Indication: ANXIETY
  5. LYRICA [Suspect]
     Indication: PAIN
  6. LYRICA [Suspect]
     Indication: SCIATICA
  7. CLONAZEPAM [Concomitant]
     Indication: PRODUCT USED FOR UNKNOWN INDICATION
     Route: 048
  8. TOPROL [Concomitant]
     Indication: PRODUCT USED FOR UNKNOWN INDICATION
     Dosage: 50 MG, UNK
     Route: 048

REACTIONS (5)
  - Tooth injury [Recovered/Resolved]
  - Tooth loss [Recovered/Resolved]
  - Bruxism [Recovered/Resolved]
  - Feeling jittery [Recovered/Resolved]
  - Drug hypersensitivity [Unknown]
